FAERS Safety Report 6551945-8 (Version None)
Quarter: 2010Q1

REPORT INFORMATION
  Report Type: 
  Country: None (occurrence: None)
  Receive Date: 20100120
  Receipt Date: 20100106
  Transmission Date: 20100710
  Serious: Yes (Other)
  Sender: FDA-Public Use
  Company Number: 2009-0216

PATIENT
  Age: 62 Year
  Sex: Female

DRUGS (3)
  1. DYSPORT 500 UNITS SPEYWOOD (DYSPORT) (BOTULINUM TOXIN TYPE A) [Suspect]
     Indication: TORTICOLLIS
     Dosage: 480 AND 240 UNITS IN EACH SPLENIUS (480 AND 240 UNITS, SINGLE CYCLE), INTRAMUSCULAR
     Route: 030
     Dates: start: 20081007, end: 20081007
  2. DYSPORT 500 UNITS SPEYWOOD (DYSPORT) (BOTULINUM TOXIN TYPE A) [Suspect]
     Indication: TORTICOLLIS
     Dosage: 480 AND 240 UNITS IN EACH SPLENIUS (480 AND 240 UNITS, SINGLE CYCLE), INTRAMUSCULAR
     Route: 030
     Dates: start: 20090120, end: 20090120
  3. ABOBOTULINUMTOXIN A [Suspect]

REACTIONS (5)
  - DRY MOUTH [None]
  - DYSPHAGIA [None]
  - DYSPHONIA [None]
  - EYELID PTOSIS [None]
  - FATIGUE [None]
